FAERS Safety Report 11584981 (Version 1)
Quarter: 2015Q4

REPORT INFORMATION
  Report Type: Spontaneous
  Country: SE (occurrence: SE)
  Receive Date: 20151001
  Receipt Date: 20151001
  Transmission Date: 20160304
  Serious: Yes (Hospitalization)
  Sender: FDA-Public Use
  Company Number: SE-PFIZER INC-2015321645

PATIENT
  Age: 48 Year
  Sex: Male

DRUGS (1)
  1. XANOR [Suspect]
     Active Substance: ALPRAZOLAM
     Dosage: UNK

REACTIONS (3)
  - Accidental overdose [Recovered/Resolved]
  - Toxicity to various agents [Recovered/Resolved]
  - Depressed level of consciousness [Recovered/Resolved]

NARRATIVE: CASE EVENT DATE: 20150907
